FAERS Safety Report 7933064-9 (Version None)
Quarter: 2011Q4

REPORT INFORMATION
  Report Type: 
  Country: None (occurrence: None)
  Receive Date: 20111122
  Receipt Date: 20111118
  Transmission Date: 20120403
  Serious: Yes (Life-Threatening, Hospitalization)
  Sender: FDA-Public Use
  Company Number: PHHY2011TR101477

PATIENT
  Sex: Female

DRUGS (1)
  1. ALLOPURINOL [Suspect]
     Indication: HYPERURICAEMIA
     Dosage: 300 MG, UNK
     Route: 048
     Dates: start: 20110324, end: 20110408

REACTIONS (10)
  - EYE PAIN [None]
  - EYE SWELLING [None]
  - OCULAR HYPERAEMIA [None]
  - STEVENS-JOHNSON SYNDROME [None]
  - PHARYNGEAL OEDEMA [None]
  - KIDNEY INFECTION [None]
  - ERYTHEMA [None]
  - GINGIVAL OEDEMA [None]
  - ORAL MUCOSAL ERYTHEMA [None]
  - SCAR [None]
